FAERS Safety Report 6972029-0 (Version None)
Quarter: 2010Q3

REPORT INFORMATION
  Report Type: 
  Country: None (occurrence: None)
  Receive Date: 20100909
  Receipt Date: 20100830
  Transmission Date: 20110219
  Serious: No
  Sender: FDA-Public Use
  Company Number: CH-BIOGENIDEC-2010BI026495

PATIENT
  Age: 27 Year
  Sex: Female

DRUGS (2)
  1. TYSABRI [Suspect]
     Indication: MULTIPLE SCLEROSIS
     Route: 042
     Dates: start: 20090512, end: 20100622
  2. TYSABRI [Suspect]
     Dates: start: 20100801

REACTIONS (1)
  - MULTIPLE SCLEROSIS RELAPSE [None]
